FAERS Safety Report 6175463-4 (Version None)
Quarter: 2009Q2

REPORT INFORMATION
  Report Type: 
  Country: None (occurrence: None)
  Receive Date: 20090430
  Receipt Date: 20090422
  Transmission Date: 20091009
  Serious: Yes (Death)
  Sender: FDA-Public Use
  Company Number: CN-SANOFI-SYNTHELABO-A01200904231

PATIENT
  Sex: Female

DRUGS (6)
  1. ESTAZOLAM [Concomitant]
     Indication: INSOMNIA
     Dosage: 2 UNIT
     Route: 048
     Dates: end: 20090320
  2. CTM [Concomitant]
     Indication: CARDIOVASCULAR DISORDER
     Dosage: 2 UNIT
     Route: 048
  3. REPAGLINIDE [Concomitant]
     Indication: DIABETES MELLITUS
     Dosage: 0.5 MG
     Route: 048
  4. TORSEMIDE [Concomitant]
     Indication: POLYURIA
     Dosage: 2 ML
     Route: 065
  5. AMLODIPINE BESYLATE [Concomitant]
     Indication: HYPERTENSION
     Dosage: 5 MG
     Route: 048
  6. ZOLPIDEM TARTRATE [Suspect]
     Indication: INSOMNIA
     Route: 048
     Dates: start: 20090321

REACTIONS (1)
  - CARDIO-RESPIRATORY ARREST [None]
